FAERS Safety Report 6435442-6 (Version None)
Quarter: 2009Q4

REPORT INFORMATION
  Report Type: 
  Country: None (occurrence: None)
  Receive Date: 20091106
  Receipt Date: 20091102
  Transmission Date: 20100525
  Serious: Yes (Death)
  Sender: FDA-Public Use
  Company Number: 20097445

PATIENT
  Age: 77 Year
  Sex: Male
  Weight: 48.2 kg

DRUGS (3)
  1. GABALON             (BACLOFEN INJECTION) [Suspect]
     Indication: MUSCLE SPASTICITY
     Dosage: MCG, DAILY, INTRATHECAL
     Route: 037
     Dates: start: 20090619
  2. GABALON [Concomitant]
  3. MAGNESIUM OXIDE [Concomitant]

REACTIONS (9)
  - ASPIRATION [None]
  - CARDIO-RESPIRATORY ARREST [None]
  - FIBRIN D DIMER INCREASED [None]
  - HAEMATEMESIS [None]
  - HYPOPNOEA [None]
  - HYPOTENSION [None]
  - PNEUMONIA [None]
  - RESPIRATORY ARREST [None]
  - RESPIRATORY DISTRESS [None]
